FAERS Safety Report 7504738-9 (Version None)
Quarter: 2011Q2

REPORT INFORMATION
  Report Type: 
  Country: None (occurrence: None)
  Receive Date: 20110525
  Receipt Date: 20101123
  Transmission Date: 20111010
  Serious: No
  Sender: FDA-Public Use
  Company Number: US-AMGEN-USASP2010006451

PATIENT
  Age: 81 Year
  Sex: Male

DRUGS (3)
  1. ARANESP [Suspect]
     Dosage: 100 A?G, Q2WK
  2. ARANESP [Suspect]
     Indication: RENAL FAILURE CHRONIC
     Dosage: 100 A?G, Q2WK
  3. ARANESP [Suspect]
     Dosage: 100 A?G, QWK

REACTIONS (1)
  - DRUG INEFFECTIVE [None]
